FAERS Safety Report 18557781 (Version 1)
Quarter: 2020Q4

REPORT INFORMATION
  Report Type: Spontaneous
  Country: CN (occurrence: CN)
  Receive Date: 20201130
  Receipt Date: 20201130
  Transmission Date: 20210114
  Serious: Yes (Other)
  Sender: FDA-Public Use
  Company Number: CN-LUPIN PHARMACEUTICALS INC.-2020-09482

PATIENT

DRUGS (4)
  1. OSELTAMIVIR [Suspect]
     Active Substance: OSELTAMIVIR
     Indication: COVID-19
     Dosage: UNK
     Route: 048
  2. ARBIDOL [Concomitant]
     Active Substance: UMIFENOVIR
     Indication: COVID-19
     Dosage: UNK
     Route: 048
  3. INTERFERON ALFA 2B [Concomitant]
     Active Substance: INTERFERON ALFA-2B
     Indication: COVID-19
     Dosage: UNK (ATOMISATION INHALATION)
  4. LOPINAVIR/RITONAVIR [Concomitant]
     Active Substance: LOPINAVIR\RITONAVIR
     Indication: COVID-19
     Dosage: UNK
     Route: 048

REACTIONS (1)
  - Off label use [Unknown]
